FAERS Safety Report 5301585-3 (Version None)
Quarter: 2007Q2

REPORT INFORMATION
  Report Type: 
  Country: None (occurrence: None)
  Receive Date: 20070412
  Receipt Date: 20070330
  Transmission Date: 20071010
  Serious: Yes (Disabling, Other)
  Sender: FDA-Public Use
  Company Number: 2007-00399

PATIENT
  Age: 78 Year
  Sex: Male
  Weight: 77.3 kg

DRUGS (3)
  1. VELCADE [Suspect]
     Indication: DRUG USE FOR UNKNOWN INDICATION
     Dosage: 0.80 MG/M2, UNK, UNKNOWN
     Dates: start: 20061003
  2. THALIDOMIDE [Suspect]
     Indication: MULTIPLE MYELOMA
  3. DEXAMETHASONE 0.5MG TAB [Concomitant]

REACTIONS (3)
  - GAIT DISTURBANCE [None]
  - NEUROPATHY PERIPHERAL [None]
  - SENSORY LOSS [None]
